FAERS Safety Report 16482225 (Version 1)
Quarter: 2019Q2

REPORT INFORMATION
  Report Type: Spontaneous
  Country: SE (occurrence: SE)
  Receive Date: 20190627
  Receipt Date: 20190627
  Transmission Date: 20190711
  Serious: Yes (Hospitalization)
  Sender: FDA-Public Use
  Company Number: SE-TEVA-2019-SE-1069814

PATIENT

DRUGS (4)
  1. LERGIGAN (PROMETHAZINE HYDROCHLORIDE) [Suspect]
     Active Substance: PROMETHAZINE HYDROCHLORIDE
     Dosage: 20 X ^25^= 500
     Route: 048
     Dates: start: 20190223, end: 20190223
  2. FELODIPINE. [Suspect]
     Active Substance: FELODIPINE
     Dosage: 20 X 10 MG
     Route: 048
     Dates: start: 20190223, end: 20190223
  3. LOSARTAN. [Suspect]
     Active Substance: LOSARTAN
     Dosage: ^20 ST^
     Route: 048
     Dates: start: 20190223, end: 20190223
  4. ACETYLSALICYLIC ACID [Suspect]
     Active Substance: ASPIRIN
     Dosage: ^20^
     Route: 048
     Dates: start: 20190223, end: 20190223

REACTIONS (2)
  - Intentional overdose [Unknown]
  - Intentional self-injury [Unknown]

NARRATIVE: CASE EVENT DATE: 20190223
